FAERS Safety Report 23943041 (Version 1)
Quarter: 2024Q2

REPORT INFORMATION
  Report Type: Spontaneous
  Country: US (occurrence: None)
  Receive Date: 20240605
  Receipt Date: 20240605
  Transmission Date: 20240716
  Serious: Yes (Hospitalization)
  Sender: FDA-Public Use
  Company Number: None

PATIENT
  Age: 17 Year
  Sex: Female
  Weight: 52.2 kg

DRUGS (1)
  1. TRUXIMA [Suspect]
     Active Substance: RITUXIMAB-ABBS
     Indication: Systemic lupus erythematosus
     Dosage: OTHER FREQUENCY : ONE TIME;?
     Route: 042
     Dates: start: 20240524

REACTIONS (3)
  - Serum sickness [None]
  - Infusion related hypersensitivity reaction [None]
  - Hypotension [None]

NARRATIVE: CASE EVENT DATE: 20240528
